FAERS Safety Report 8450388-X (Version None)
Quarter: 2012Q2

REPORT INFORMATION
  Report Type: 
  Country: None (occurrence: None)
  Receive Date: 20120620
  Receipt Date: 20120619
  Transmission Date: 20120825
  Serious: Yes (Other)
  Sender: FDA-Public Use
  Company Number: JP-PFIZER INC-2012146736

PATIENT
  Sex: Female

DRUGS (2)
  1. TAMOXIFEN CITRATE [Concomitant]
     Dosage: UNK
     Route: 048
  2. ZOLOFT [Suspect]
     Dosage: 25 MG/DAY
     Route: 048
     Dates: start: 20120604

REACTIONS (4)
  - PNEUMONIA [None]
  - PYREXIA [None]
  - DELIRIUM [None]
  - OEDEMA PERIPHERAL [None]
